FAERS Safety Report 13985220 (Version 1)
Quarter: 2017Q3

REPORT INFORMATION
  Report Type: Spontaneous
  Country: US (occurrence: None)
  Receive Date: 20170918
  Receipt Date: 20170918
  Transmission Date: 20171128
  Serious: No
  Sender: FDA-Public Use
  Company Number: None

PATIENT
  Sex: Female
  Weight: 103.42 kg

DRUGS (2)
  1. CIMZIA [Suspect]
     Active Substance: CERTOLIZUMAB PEGOL
     Indication: ARTHROPATHY
     Route: 058
     Dates: start: 201707
  2. CIMZIA [Suspect]
     Active Substance: CERTOLIZUMAB PEGOL
     Indication: RHEUMATOID ARTHRITIS
     Route: 058
     Dates: start: 201707

REACTIONS (10)
  - Lethargy [None]
  - Contusion [None]
  - Feeling abnormal [None]
  - Influenza like illness [None]
  - Malaise [None]
  - Fatigue [None]
  - Dizziness [None]
  - Oral herpes [None]
  - Viral infection [None]
  - Headache [None]
